FAERS Safety Report 20004990 (Version 2)
Quarter: 2021Q4

REPORT INFORMATION
  Report Type: Report from Study
  Country: FR (occurrence: None)
  Receive Date: 20211028
  Receipt Date: 20211108
  Transmission Date: 20220303
  Serious: Yes (Death)
  Sender: FDA-Public Use
  Company Number: FR-ROCHE-2943647

PATIENT
  Age: 65 Year
  Sex: Male
  Weight: 78 kg

DRUGS (5)
  1. ATEZOLIZUMAB [Suspect]
     Active Substance: ATEZOLIZUMAB
     Indication: Squamous cell carcinoma of head and neck
     Dosage: ON 01/OCT/2021, HE TOOK LAST DOSE OF ATEZOLIZUMAB PRIOR TO EVENT ONSET.
     Route: 041
     Dates: start: 20210730
  2. BEVACIZUMAB [Suspect]
     Active Substance: BEVACIZUMAB
     Indication: Squamous cell carcinoma of head and neck
     Dosage: ON 20/AUG/2021, HE TOOK LAST DOSE OF BEVACIZUMAB PRIOR TO EVENT ONSET. ON THE SAME DAY, BEVACIZUAMB
     Route: 042
     Dates: start: 20210730, end: 20210820
  3. ACETAMINOPHEN [Concomitant]
     Active Substance: ACETAMINOPHEN
     Indication: Pain
     Route: 048
  4. FENTANYL [Concomitant]
     Active Substance: FENTANYL
     Indication: Pain
     Route: 048
  5. OXYCODONE HYDROCHLORIDE [Concomitant]
     Active Substance: OXYCODONE HYDROCHLORIDE
     Indication: Pain
     Route: 048

REACTIONS (1)
  - Haemorrhage [Fatal]

NARRATIVE: CASE EVENT DATE: 20211020
